FAERS Safety Report 10205171 (Version 1)
Quarter: 2014Q2

REPORT INFORMATION
  Report Type: Spontaneous
  Country: US (occurrence: None)
  Receive Date: 20140527
  Receipt Date: 20140527
  Transmission Date: 20141212
  Serious: Yes (Life-Threatening, Disabling)
  Sender: FDA-Public Use
  Company Number: None

PATIENT
  Age: 30 Year
  Sex: Female
  Weight: 53.07 kg

DRUGS (2)
  1. NORCO 10/325 (WATSON LABORATORIES) [Suspect]
     Indication: DEPENDENCE
     Dosage: 4-6 I TOOK 4 HRS --
     Dates: start: 20091119, end: 20140520
  2. PERCOCET 10/325 1 [Suspect]

REACTIONS (4)
  - Drug dependence [None]
  - Wound [None]
  - Lymphoedema [None]
  - Mental disorder [None]
